FAERS Safety Report 19685319 (Version 1)
Quarter: 2021Q3

REPORT INFORMATION
  Report Type: Spontaneous
  Country: US (occurrence: US)
  Receive Date: 20210811
  Receipt Date: 20210811
  Transmission Date: 20211014
  Serious: Yes (Hospitalization)
  Sender: FDA-Public Use
  Company Number: None

PATIENT
  Age: 81 Year
  Sex: Male
  Weight: 66 kg

DRUGS (15)
  1. MULTIVITAMIN [Concomitant]
     Active Substance: VITAMINS
  2. INSULIN DETEMIR [Concomitant]
     Active Substance: INSULIN DETEMIR
  3. LEVOHYROXINE [Concomitant]
  4. DIGOXIN. [Concomitant]
     Active Substance: DIGOXIN
  5. METOPROLOL. [Concomitant]
     Active Substance: METOPROLOL
  6. OMEPRAZOLE. [Concomitant]
     Active Substance: OMEPRAZOLE
  7. FERROUS GLUCONATE [Concomitant]
     Active Substance: FERROUS GLUCONATE
  8. ASPIRIN. [Concomitant]
     Active Substance: ASPIRIN
  9. APIXABAN [Concomitant]
     Active Substance: APIXABAN
  10. EZETIMIBE. [Concomitant]
     Active Substance: EZETIMIBE
  11. REGEN?COV [Suspect]
     Active Substance: CASIRIVIMAB\IMDEVIMAB
     Indication: COVID-19
     Dosage: ?          OTHER FREQUENCY:ONCE;?
     Route: 042
     Dates: start: 20210809, end: 20210809
  12. LISINOPRIL. [Concomitant]
     Active Substance: LISINOPRIL
  13. PRAVASTATIN. [Concomitant]
     Active Substance: PRAVASTATIN
  14. CHOLECALCIFEROL [Concomitant]
     Active Substance: CHOLECALCIFEROL
  15. GABAPENTIN. [Concomitant]
     Active Substance: GABAPENTIN

REACTIONS (5)
  - Asthenia [None]
  - Decreased appetite [None]
  - Craniocerebral injury [None]
  - Hypophagia [None]
  - Pneumonia [None]

NARRATIVE: CASE EVENT DATE: 20210809
